FAERS Safety Report 18539821 (Version 2)
Quarter: 2021Q4

REPORT INFORMATION
  Report Type: Spontaneous
  Country: US (occurrence: US)
  Receive Date: 20201124
  Receipt Date: 20211124
  Transmission Date: 20220303
  Serious: No
  Sender: FDA-Public Use
  Company Number: US-KERYX BIOPHARMACEUTICALS INC.-2020US007038

PATIENT
  Age: 84 Year
  Sex: Female

DRUGS (1)
  1. AURYXIA [Suspect]
     Active Substance: TETRAFERRIC TRICITRATE DECAHYDRATE
     Indication: Hyperphosphataemia
     Dosage: UNK
     Route: 048
     Dates: start: 20200904, end: 20200918

REACTIONS (3)
  - Malaise [Unknown]
  - Abdominal pain [Unknown]
  - Faeces soft [Unknown]

NARRATIVE: CASE EVENT DATE: 20200901
